FAERS Safety Report 4505099-X (Version None)
Quarter: 2004Q4

REPORT INFORMATION
  Report Type: 
  Country: None (occurrence: None)
  Receive Date: 20041116
  Receipt Date: 20041103
  Transmission Date: 20050328
  Serious: Yes (Hospitalization)
  Sender: FDA-Public Use
  Company Number: 2004087412

PATIENT
  Age: 35 Year
  Sex: Female

DRUGS (1)
  1. ZOLOFT [Suspect]
     Indication: DEPRESSION
     Dosage: 200 MG (100 MG, 2 IN 1 D), ORAL
     Route: 048
     Dates: start: 20000701

REACTIONS (3)
  - BENIGN INTRACRANIAL HYPERTENSION [None]
  - STRABISMUS [None]
  - WEIGHT INCREASED [None]
